FAERS Safety Report 10221400 (Version 1)
Quarter: 2014Q2

REPORT INFORMATION
  Report Type: Spontaneous
  Country: NL (occurrence: NL)
  Receive Date: 20140606
  Receipt Date: 20140606
  Transmission Date: 20141212
  Serious: Yes (Other)
  Sender: FDA-Public Use
  Company Number: NL-ASTRAZENECA-2014SE36815

PATIENT
  Age: 67 Year
  Sex: Female

DRUGS (7)
  1. ROPIVACAINE [Suspect]
     Indication: INFILTRATION ANAESTHESIA
     Route: 050
  2. ROPIVACAINE [Suspect]
     Indication: INFILTRATION ANAESTHESIA
     Route: 050
  3. ROPIVACAINE [Suspect]
     Indication: INFILTRATION ANAESTHESIA
     Route: 050
  4. EPINEPHRINE [Suspect]
     Indication: INFILTRATION ANAESTHESIA
     Dosage: 5 UG/ML
     Route: 050
  5. BUPIVACAINE [Concomitant]
     Indication: SPINAL ANAESTHESIA
  6. METOPROLOL [Concomitant]
  7. NITROGLYCERIN [Concomitant]

REACTIONS (11)
  - Overdose [Unknown]
  - Toxicity to various agents [Unknown]
  - Atrial fibrillation [Unknown]
  - Loss of consciousness [Recovered/Resolved]
  - Clonic convulsion [Recovered/Resolved]
  - Convulsion [Recovered/Resolved]
  - Convulsions local [Recovered/Resolved]
  - Agitation [Unknown]
  - Chest pain [Unknown]
  - Depressed level of consciousness [Unknown]
  - Heart rate increased [Unknown]
